FAERS Safety Report 24438115 (Version 1)
Quarter: 2024Q4

REPORT INFORMATION
  Report Type: Spontaneous
  Country: PL (occurrence: PL)
  Receive Date: 20241015
  Receipt Date: 20241015
  Transmission Date: 20250114
  Serious: Yes (Hospitalization)
  Sender: JOHNSON AND JOHNSON
  Company Number: PL-JNJFOC-20241030670

PATIENT
  Age: 3 Year
  Sex: Female

DRUGS (2)
  1. MEBENDAZOLE [Suspect]
     Active Substance: MEBENDAZOLE
     Indication: Ascariasis
     Route: 065
  2. FLUBENDAZOLE [Suspect]
     Active Substance: FLUBENDAZOLE
     Indication: Ascariasis
     Route: 065

REACTIONS (1)
  - Upper respiratory tract infection [Unknown]
